FAERS Safety Report 6599925-0 (Version None)
Quarter: 2010Q1

REPORT INFORMATION
  Report Type: 
  Country: None (occurrence: None)
  Receive Date: 20100217
  Receipt Date: 20100208
  Transmission Date: 20100710
  Serious: Yes (Death, Life-Threatening, Other)
  Sender: FDA-Public Use
  Company Number: 2010US000175

PATIENT
  Age: 21 Year
  Sex: Female
  Weight: 64 kg

DRUGS (15)
  1. VIBATIV [Suspect]
     Indication: STAPHYLOCOCCAL INFECTION
     Dosage: 650 MG, QOD, IV NOS
     Route: 042
     Dates: start: 20091119, end: 20091216
  2. VANCOMYCIN [Concomitant]
  3. DAPTOMYCIN (DAPTOMYCIN) [Concomitant]
  4. CLINDAMYCIN HCL [Concomitant]
  5. INSULIN (INSULIN) [Concomitant]
  6. METHOTREXATE [Concomitant]
  7. ZOLOFT [Concomitant]
  8. ZANAFLEX [Concomitant]
  9. SEROQUEL [Concomitant]
  10. AMBIEN CR [Concomitant]
  11. CHANTIX [Concomitant]
  12. PERCOCET [Concomitant]
  13. ROCEPHIN [Concomitant]
  14. AZITHROMYCIN [Concomitant]
  15. TAMIFLU [Concomitant]

REACTIONS (14)
  - ACUTE RESPIRATORY DISTRESS SYNDROME [None]
  - CHOLECYSTITIS [None]
  - GENERAL PHYSICAL HEALTH DETERIORATION [None]
  - MULTI-ORGAN DISORDER [None]
  - PLEURAL EFFUSION [None]
  - PNEUMONIA STAPHYLOCOCCAL [None]
  - PNEUMOTHORAX [None]
  - PULMONARY CAVITATION [None]
  - PULMONARY PNEUMATOCELE [None]
  - REFUSAL OF TREATMENT BY PATIENT [None]
  - RENAL FAILURE [None]
  - RESPIRATORY FAILURE [None]
  - STAPHYLOCOCCAL BACTERAEMIA [None]
  - STAPHYLOCOCCAL OSTEOMYELITIS [None]
